FAERS Safety Report 7792232-X (Version None)
Quarter: 2011Q4

REPORT INFORMATION
  Report Type: 
  Country: None (occurrence: None)
  Receive Date: 20111003
  Receipt Date: 20110923
  Transmission Date: 20120403
  Serious: Yes (Other)
  Sender: FDA-Public Use
  Company Number: FR-ABBOTT-11P-056-0857434-00

PATIENT
  Sex: Male

DRUGS (5)
  1. RIBAVIRIN [Concomitant]
     Indication: HEPATITIS C
     Route: 048
  2. RO 5024048 (POLYMERASE INHIBITOR) [Concomitant]
     Indication: HEPATITIS C
     Route: 048
     Dates: start: 20110621
  3. RITONAVIR [Suspect]
     Indication: HEPATITIS C
     Route: 048
     Dates: start: 20110621
  4. PEG-INTERFERON ALFA 2A (RO 25.5310) [Concomitant]
     Indication: HEPATITIS C
     Dosage: QS
     Route: 058
  5. RO5180591 (ITMN-191) [Concomitant]
     Indication: HEPATITIS C
     Dates: start: 20110621

REACTIONS (1)
  - IRRITABILITY [None]
